FAERS Safety Report 23654992 (Version 1)
Quarter: 2024Q1

REPORT INFORMATION
  Report Type: Spontaneous
  Country: CA (occurrence: CA)
  Receive Date: 20240320
  Receipt Date: 20240320
  Transmission Date: 20240410
  Serious: Yes (Hospitalization, Other)
  Sender: FDA-Public Use
  Company Number: CA-PFIZER INC-202300282628

PATIENT
  Age: 71 Year
  Sex: Female
  Weight: 78 kg

DRUGS (14)
  1. RUXIENCE [Suspect]
     Active Substance: RITUXIMAB-PVVR
     Indication: Granulomatosis with polyangiitis
     Dosage: 513.8 MG WEEK 1, WAS SUPPOSED TO RECEIVE 637.5 MG WEEKLY X 4 WEEKS (1 DF)
     Route: 042
     Dates: start: 20230821
  2. RUXIENCE [Suspect]
     Active Substance: RITUXIMAB-PVVR
     Dosage: 513.8 MG WEEK 1, WAS SUPPOSED TO RECEIVE 637.5 MG WEEKLY X 4 WEEKS / 1 DF
     Route: 042
     Dates: start: 20230821
  3. RUXIENCE [Suspect]
     Active Substance: RITUXIMAB-PVVR
     Dosage: 637.5 MG AFTER 1 WEEK
     Route: 042
     Dates: start: 20230828
  4. RUXIENCE [Suspect]
     Active Substance: RITUXIMAB-PVVR
     Dosage: 637.5 MG AFTER 1 WEEK
     Route: 042
     Dates: start: 20230828
  5. RUXIENCE [Suspect]
     Active Substance: RITUXIMAB-PVVR
     Dosage: 637.5 MG AFTER 1 WEEK
     Route: 042
     Dates: start: 20230905
  6. RUXIENCE [Suspect]
     Active Substance: RITUXIMAB-PVVR
     Dosage: 637.5 MG AFTER 1 WEEK
     Route: 042
     Dates: start: 20230905
  7. RUXIENCE [Suspect]
     Active Substance: RITUXIMAB-PVVR
     Dosage: 637.5 MG AFTER 1 WEEK
     Route: 042
     Dates: start: 20230915
  8. RUXIENCE [Suspect]
     Active Substance: RITUXIMAB-PVVR
     Dosage: 500 MG, (DAY 1 RETREATMENT)
     Route: 042
     Dates: start: 20240315
  9. ACETAMINOPHEN [Concomitant]
     Active Substance: ACETAMINOPHEN
     Indication: Premedication
     Dosage: 650 MG
     Dates: start: 20230828, end: 20230828
  10. DIPHENHYDRAMINE [Concomitant]
     Active Substance: DIPHENHYDRAMINE
     Indication: Premedication
     Dosage: 50 MG
     Dates: start: 20230828, end: 20230828
  11. METHYLPREDNISOLONE [Concomitant]
     Active Substance: METHYLPREDNISOLONE
     Indication: Premedication
     Dosage: 100 MG
     Dates: start: 20230828, end: 20230828
  12. PREDNISONE [Concomitant]
     Active Substance: PREDNISONE
     Dosage: UNK
  13. PANTOPRAZOLE [Concomitant]
     Active Substance: PANTOPRAZOLE
     Dosage: UNK
  14. RISEDRONATE SODIUM [Concomitant]
     Active Substance: RISEDRONATE SODIUM
     Dosage: UNK

REACTIONS (4)
  - Pulmonary thrombosis [Recovered/Resolved]
  - Heart rate decreased [Recovered/Resolved]
  - Incorrect product administration duration [Unknown]
  - Incorrect dose administered [Unknown]

NARRATIVE: CASE EVENT DATE: 20230821
